FAERS Safety Report 11029742 (Version 1)
Quarter: 2015Q2

REPORT INFORMATION
  Report Type: Spontaneous
  Country: US (occurrence: None)
  Receive Date: 20150413
  Receipt Date: 20150413
  Transmission Date: 20150821
  Serious: Yes (Other)
  Sender: FDA-Public Use
  Company Number: None

PATIENT
  Age: 93 Year
  Sex: Male
  Weight: 84.82 kg

DRUGS (14)
  1. VALSARTAN 160 MG OHM LABORATORIES [Suspect]
     Active Substance: VALSARTAN
     Indication: DRUG THERAPY
     Dosage: T TABLET TWICE DAILY TAKEN BY MOUTH
     Route: 048
     Dates: start: 20141102, end: 20141123
  2. DIOVAN [Concomitant]
     Active Substance: VALSARTAN
  3. DOXAZOSIN MESYLATE. [Concomitant]
     Active Substance: DOXAZOSIN MESYLATE
  4. OMERG 3 FISH OIL [Concomitant]
  5. ALLOPURINOL. [Concomitant]
     Active Substance: ALLOPURINOL
  6. TRAMADOL [Concomitant]
     Active Substance: TRAMADOL
  7. METAMUCIL [Concomitant]
     Active Substance: PLANTAGO SEED
  8. MULTI VITAMIN [Concomitant]
     Active Substance: VITAMINS
  9. SYNTHROID [Concomitant]
     Active Substance: LEVOTHYROXINE SODIUM
  10. FLUTICASONE [Concomitant]
     Active Substance: FLUTICASONE\FLUTICASONE PROPIONATE
  11. INSTAFLEX [Concomitant]
     Active Substance: DIETARY SUPPLEMENT
  12. FUROSEMIDE. [Concomitant]
     Active Substance: FUROSEMIDE
  13. WARFARIN [Concomitant]
     Active Substance: WARFARIN
  14. ASPIRIN. [Concomitant]
     Active Substance: ASPIRIN

REACTIONS (2)
  - Product substitution issue [None]
  - Blood pressure increased [None]

NARRATIVE: CASE EVENT DATE: 20141120
